FAERS Safety Report 9849420 (Version 2)
Quarter: 2014Q1

REPORT INFORMATION
  Report Type: Report from Study
  Country: US (occurrence: US)
  Receive Date: 20140128
  Receipt Date: 20140304
  Transmission Date: 20141002
  Serious: Yes (Other)
  Sender: FDA-Public Use
  Company Number: US-PURDUE-USA-2014-0110574

PATIENT
  Age: 44 Year
  Sex: Female

DRUGS (2)
  1. OXY CR TAB [Suspect]
     Indication: SMALL INTESTINE CARCINOMA
     Dosage: 20 MG, Q12H
     Route: 048
     Dates: start: 20131224
  2. OXY CR TAB [Suspect]
     Dosage: 40 MG, Q12H
     Route: 048

REACTIONS (2)
  - Malignant neoplasm progression [Not Recovered/Not Resolved]
  - Pain [Unknown]
